FAERS Safety Report 9668004 (Version 2)
Quarter: 2014Q1

REPORT INFORMATION
  Report Type: Spontaneous
  Country: FR (occurrence: FR)
  Receive Date: 20131104
  Receipt Date: 20140219
  Transmission Date: 20141002
  Serious: Yes (Disabling, Other)
  Sender: FDA-Public Use
  Company Number: FR-GLAXOSMITHKLINE-B0936549A

PATIENT
  Age: 82 Year
  Sex: Male

DRUGS (16)
  1. ZELITREX [Suspect]
     Indication: PROPHYLAXIS
     Dosage: 500MG TWICE PER DAY
     Route: 048
     Dates: start: 20130522, end: 20130927
  2. MABTHERA [Suspect]
     Indication: B-CELL LYMPHOMA
     Dosage: 600MG CYCLIC
     Route: 042
     Dates: start: 20130522, end: 20130905
  3. ARACYTINE [Suspect]
     Indication: B-CELL LYMPHOMA
     Dosage: 2000MG CYCLIC
     Route: 042
     Dates: start: 20130522, end: 20130905
  4. CARBOPLATINE [Suspect]
     Indication: B-CELL LYMPHOMA
     Dosage: 300MG CYCLIC
     Route: 042
     Dates: start: 20130523, end: 20130905
  5. PREDNISOLONE [Suspect]
     Indication: B-CELL LYMPHOMA
     Dosage: 60MG CYCLIC
     Route: 042
     Dates: start: 20130522, end: 20130905
  6. BACTRIM [Suspect]
     Indication: PROPHYLAXIS
     Dosage: 1UNIT THREE TIMES PER WEEK
     Route: 048
     Dates: start: 20130522, end: 20130927
  7. DOMPERIDONE [Suspect]
     Indication: PROPHYLAXIS
     Route: 048
     Dates: start: 20130522, end: 20130927
  8. ZYLORIC [Concomitant]
     Indication: PROPHYLAXIS
     Dosage: 300MG PER DAY
     Dates: start: 20130522
  9. MOVICOL [Concomitant]
     Dates: start: 20130612
  10. ERYTHROPOIETIN [Concomitant]
     Dates: start: 20130712
  11. FOLIC ACID [Concomitant]
     Dates: start: 20130712
  12. GRANULOCYTE COLONY-STIMULATING FACTOR NOS [Concomitant]
  13. ACEBUTOLOL [Concomitant]
     Dosage: 200MG PER DAY
  14. AMLOR [Concomitant]
     Dosage: 10MG PER DAY
  15. KARDEGIC [Concomitant]
     Dosage: 160MG PER DAY
  16. PERMIXON [Concomitant]
     Dosage: 2UNIT PER DAY

REACTIONS (3)
  - Parkinsonism [Not Recovered/Not Resolved]
  - Gait disturbance [Not Recovered/Not Resolved]
  - Tremor [Not Recovered/Not Resolved]
